FAERS Safety Report 4360979-3 (Version None)
Quarter: 2004Q2

REPORT INFORMATION
  Report Type: 
  Country: None (occurrence: None)
  Receive Date: 20040514
  Receipt Date: 20040506
  Transmission Date: 20050107
  Serious: Yes (Other)
  Sender: FDA-Public Use
  Company Number: 2004030382

PATIENT
  Age: 34 Year
  Sex: Female

DRUGS (3)
  1. ZYRTEC (TABLETS) (CETRIZINE) [Suspect]
     Indication: SEASONAL ALLERGY
     Dates: end: 20030707
  2. ETHANOL (ETHANOL) [Suspect]
     Indication: ILL-DEFINED DISORDER
  3. PAROXETINE HCL [Concomitant]

REACTIONS (2)
  - FATIGUE [None]
  - PANCYTOPENIA [None]
